FAERS Safety Report 24066750 (Version 1)
Quarter: 2024Q3

REPORT INFORMATION
  Report Type: Spontaneous
  Country: US (occurrence: None)
  Receive Date: 20240709
  Receipt Date: 20240709
  Transmission Date: 20241017
  Serious: Yes (Other)
  Sender: Public
  Company Number: None

PATIENT
  Age: 54 Year
  Sex: Male

DRUGS (1)
  1. ZIRABEV [Suspect]
     Active Substance: BEVACIZUMAB-BVZR
     Indication: Rectal cancer
     Dosage: OTHER FREQUENCY : EVERY 21 DAYS;?

REACTIONS (3)
  - Rectal cancer [None]
  - Malignant neoplasm progression [None]
  - Therapy change [None]
